FAERS Safety Report 23994479 (Version 6)
Quarter: 2024Q3

REPORT INFORMATION
  Report Type: Report from Study
  Country: US (occurrence: US)
  Receive Date: 20240620
  Receipt Date: 20240829
  Transmission Date: 20241017
  Serious: Yes (Other)
  Sender: GILEAD
  Company Number: US-GILEAD-2024-0677577

PATIENT
  Age: 73 Year
  Sex: Female
  Weight: 73.5 kg

DRUGS (34)
  1. AMBRISENTAN [Suspect]
     Active Substance: AMBRISENTAN
     Indication: Pulmonary hypertension
     Dosage: 10 MG, QD
     Route: 065
     Dates: start: 20210106
  2. AMBRISENTAN [Suspect]
     Active Substance: AMBRISENTAN
     Indication: Pulmonary arterial hypertension
  3. TYVASO DPI [Suspect]
     Active Substance: TREPROSTINIL
     Indication: Pulmonary hypertension
     Dosage: 48 UG
     Route: 055
     Dates: start: 20231127
  4. TYVASO DPI [Suspect]
     Active Substance: TREPROSTINIL
     Dosage: 64 UG, QID
     Route: 055
     Dates: start: 20231127
  5. REPHRESH [Concomitant]
  6. VALTREX [Concomitant]
     Active Substance: VALACYCLOVIR HYDROCHLORIDE
  7. SINGULAIR [Concomitant]
     Active Substance: MONTELUKAST SODIUM
  8. MYCOPHENOLATE MOFETIL [Concomitant]
     Active Substance: MYCOPHENOLATE MOFETIL
  9. TYLENOL EXTRA STRENGTH [Concomitant]
     Active Substance: ACETAMINOPHEN
  10. OXYCODONE HYDROCHLORIDE [Concomitant]
     Active Substance: OXYCODONE HYDROCHLORIDE
  11. GABAPENTIN [Concomitant]
     Active Substance: GABAPENTIN
  12. PREDNISONE [Concomitant]
     Active Substance: PREDNISONE
  13. TRELEGY ELLIPTA [Concomitant]
     Active Substance: FLUTICASONE FUROATE\UMECLIDINIUM BROMIDE\VILANTEROL TRIFENATATE
  14. MUCINEX [Concomitant]
     Active Substance: GUAIFENESIN
  15. ACIPHEX [Concomitant]
     Active Substance: RABEPRAZOLE SODIUM
  16. PROAIR HFA [Concomitant]
     Active Substance: ALBUTEROL SULFATE
  17. FLOVENT HFA [Concomitant]
     Active Substance: FLUTICASONE PROPIONATE
  18. METOPROLOL TARTRATE [Concomitant]
     Active Substance: METOPROLOL TARTRATE
  19. SPIRONOLACTONE [Concomitant]
     Active Substance: SPIRONOLACTONE
  20. REVATIO [Concomitant]
     Active Substance: SILDENAFIL CITRATE
  21. OXYGEN [Concomitant]
     Active Substance: OXYGEN
  22. BENADRYL ALLERGY [DIPHENHYDRAMINE HYDROCHLORIDE;PHENYLALANINE] [Concomitant]
  23. ASPIRIN [Concomitant]
     Active Substance: ASPIRIN
  24. ICY HOT (MENTHOL) [Concomitant]
     Active Substance: MENTHOL
  25. GUAIFENESIN [Concomitant]
     Active Substance: GUAIFENESIN
  26. CODEINE [Concomitant]
     Active Substance: CODEINE
  27. DIGOXIN [Concomitant]
     Active Substance: DIGOXIN
  28. ELIQUIS [Concomitant]
     Active Substance: APIXABAN
  29. LEXAPRO [Concomitant]
     Active Substance: ESCITALOPRAM OXALATE
  30. MAGNESIUM [Concomitant]
     Active Substance: MAGNESIUM
  31. CALCIUM [Concomitant]
     Active Substance: CALCIUM
  32. OCUVITE [ASCORBIC ACID;RETINOL;TOCOPHEROL] [Concomitant]
  33. HYDROCHLOROTHIAZIDE [Concomitant]
     Active Substance: HYDROCHLOROTHIAZIDE
  34. BENZONATATE [Concomitant]
     Active Substance: BENZONATATE

REACTIONS (10)
  - Systemic lupus erythematosus [Not Recovered/Not Resolved]
  - Peripheral swelling [Unknown]
  - Skin odour abnormal [Unknown]
  - Asthma [Not Recovered/Not Resolved]
  - Gait disturbance [Not Recovered/Not Resolved]
  - COVID-19 [Recovered/Resolved]
  - Cardiomegaly [Not Recovered/Not Resolved]
  - Productive cough [Unknown]
  - Insomnia [Unknown]
  - Throat irritation [Unknown]
